FAERS Safety Report 5276521-9 (Version None)
Quarter: 2007Q1

REPORT INFORMATION
  Report Type: 
  Country: None (occurrence: None)
  Receive Date: 20061213
  Receipt Date: 20031008
  Transmission Date: 20070707
  Serious: No
  Sender: FDA-Public Use
  Company Number: 2003UW12995

PATIENT
  Age: 40 Year
  Sex: Male
  Weight: 63.5036 kg

DRUGS (2)
  1. SEROQUEL [Suspect]
     Indication: SLEEP DISORDER
     Dosage: 100 MG HS PO
     Route: 048
  2. HALDOL [Suspect]
     Dosage: 25 MG Q4WK IM
     Route: 030

REACTIONS (2)
  - SOMNOLENCE [None]
  - TARDIVE DYSKINESIA [None]
